FAERS Safety Report 14179019 (Version 1)
Quarter: 2017Q4

REPORT INFORMATION
  Report Type: Spontaneous
  Country: CN (occurrence: CN)
  Receive Date: 20171110
  Receipt Date: 20171110
  Transmission Date: 20180321
  Serious: Yes (Death, Other)
  Sender: FDA-Public Use
  Company Number: CN-PFIZER INC-2017480779

PATIENT
  Age: 84 Year
  Sex: Male

DRUGS (1)
  1. VIAGRA [Suspect]
     Active Substance: SILDENAFIL CITRATE
     Dosage: 1 TABLET, SINGLE
     Route: 048
     Dates: start: 20171101, end: 20171101

REACTIONS (3)
  - Depressed level of consciousness [Unknown]
  - Cerebral haemorrhage [Fatal]
  - Headache [Unknown]

NARRATIVE: CASE EVENT DATE: 20171102
